FAERS Safety Report 9835675 (Version 1)
Quarter: 2014Q1

REPORT INFORMATION
  Report Type: Report from Study
  Country: US (occurrence: US)
  Receive Date: 20140122
  Receipt Date: 20140122
  Transmission Date: 20141002
  Serious: Yes (Hospitalization)
  Sender: FDA-Public Use
  Company Number: US-BRISTOL-MYERS SQUIBB COMPANY-20052387

PATIENT
  Age: 60 Year
  Sex: Male
  Weight: 78.3 kg

DRUGS (1)
  1. IPILIMUMAB [Suspect]
     Indication: MALIGNANT MELANOMA
     Dosage: EVERY 12 WEEKS ON WEEKS 24,36,48 AND 60?TOTAL DOSE: 219MG, LAST DOSE: 04NOV13
     Route: 042
     Dates: start: 20131014

REACTIONS (1)
  - Cerebrovascular accident [Recovering/Resolving]
